FAERS Safety Report 5089857-1 (Version None)
Quarter: 2006Q3

REPORT INFORMATION
  Report Type: 
  Country: None (occurrence: None)
  Receive Date: 20060823
  Receipt Date: 20060810
  Transmission Date: 20061208
  Serious: Yes (Death)
  Sender: FDA-Public Use
  Company Number: 2006-DE-04203GD

PATIENT
  Age: 66 Year
  Sex: Male

DRUGS (1)
  1. PREDNISONE TAB [Suspect]
     Indication: PEMPHIGUS
     Dosage: 60 MG

REACTIONS (1)
  - PNEUMOCYSTIS JIROVECI PNEUMONIA [None]
